FAERS Safety Report 9442070 (Version 2)
Quarter: 2014Q1

REPORT INFORMATION
  Report Type: Spontaneous
  Country: FR (occurrence: FR)
  Receive Date: 20130806
  Receipt Date: 20140217
  Transmission Date: 20141002
  Serious: Yes (Other)
  Sender: FDA-Public Use
  Company Number: FR-AMGEN-FRASP2013054676

PATIENT
  Age: 51 Year
  Sex: Female

DRUGS (12)
  1. ENBREL [Suspect]
     Indication: PRODUCT USED FOR UNKNOWN INDICATION
     Dosage: UNK
     Route: 058
     Dates: start: 1984, end: 201209
  2. SIMPONI [Suspect]
     Indication: PRODUCT USED FOR UNKNOWN INDICATION
     Dosage: 50 MG, /MINUTE
     Route: 058
     Dates: start: 201209, end: 201211
  3. CORTANCYL [Concomitant]
     Dosage: 5 MG, 1X/DAY
     Route: 048
  4. CALTRATE                           /07357001/ [Concomitant]
     Dosage: UNK
     Route: 048
  5. CHONDROITIN SULFATE SODIUM [Concomitant]
     Dosage: UNK
  6. GLUCOSAMINE [Concomitant]
     Dosage: UNK
  7. RESTASIS [Concomitant]
     Dosage: UNK
  8. MOPRAL                             /00661201/ [Concomitant]
     Dosage: UNK
  9. VITAMIN D3 [Concomitant]
     Dosage: UNK
  10. EFFERALGAN                         /00020001/ [Concomitant]
     Dosage: UNK
  11. VITAMIN B12                        /00056201/ [Concomitant]
     Dosage: UNK UNK, QMO
  12. CORTISONE [Concomitant]
     Dosage: 5 MG DAILY

REACTIONS (1)
  - Rheumatoid arthritis [Unknown]
